FAERS Safety Report 13653524 (Version 1)
Quarter: 2017Q2

REPORT INFORMATION
  Report Type: Spontaneous
  Country: US (occurrence: US)
  Receive Date: 20170614
  Receipt Date: 20170614
  Transmission Date: 20170830
  Serious: No
  Sender: FDA-Public Use
  Company Number: US-ROCHE-1223053

PATIENT
  Sex: Female

DRUGS (1)
  1. XELODA [Suspect]
     Active Substance: CAPECITABINE
     Indication: NEOPLASM MALIGNANT
     Dosage: 2 WEEKS ON 7 DAYS OFF
     Route: 048
     Dates: start: 20130402

REACTIONS (3)
  - Pain [Recovering/Resolving]
  - Erythema [Recovering/Resolving]
  - Diarrhoea [Recovered/Resolved]
